FAERS Safety Report 14450411 (Version 1)
Quarter: 2018Q1

REPORT INFORMATION
  Report Type: Spontaneous
  Country: AT (occurrence: AT)
  Receive Date: 20180129
  Receipt Date: 20180129
  Transmission Date: 20180509
  Serious: Yes (Hospitalization)
  Sender: FDA-Public Use
  Company Number: AT-CONCORDIA PHARMACEUTICALS INC.-E2B_00009602

PATIENT
  Age: 81 Year
  Sex: Female

DRUGS (6)
  1. METHOTREXAT [Suspect]
     Active Substance: METHOTREXATE
     Indication: MYOSITIS
     Dosage: 15MG/WOCHE
     Route: 058
     Dates: end: 201712
  2. SANDIMMUN [Suspect]
     Active Substance: CYCLOSPORINE
     Indication: RHEUMATOID ARTHRITIS
     Dosage: 50MG/DIE
     Route: 048
     Dates: start: 201705, end: 201712
  3. METHOTREXAT [Suspect]
     Active Substance: METHOTREXATE
     Indication: RHEUMATOID ARTHRITIS
     Dosage: 15MG/WOCHE
     Route: 058
     Dates: end: 201712
  4. PREDNISOLONE. [Suspect]
     Active Substance: PREDNISOLONE
     Indication: RHEUMATOID ARTHRITIS
     Dosage: 15MG/DIE
     Route: 048
     Dates: end: 201712
  5. SANDIMMUN [Suspect]
     Active Substance: CYCLOSPORINE
     Indication: RHEUMATOID ARTHRITIS
     Dosage: 50MG/DIE
     Route: 048
     Dates: start: 201705, end: 201712
  6. PREDNISOLONE. [Suspect]
     Active Substance: PREDNISOLONE
     Indication: RHEUMATOID ARTHRITIS
     Dosage: 15MG/DIE
     Route: 048
     Dates: end: 201712

REACTIONS (1)
  - Bartholin^s abscess [Recovered/Resolved]

NARRATIVE: CASE EVENT DATE: 20171206
